FAERS Safety Report 6029763-9 (Version None)
Quarter: 2009Q1

REPORT INFORMATION
  Report Type: 
  Country: None (occurrence: None)
  Receive Date: 20090107
  Receipt Date: 20090105
  Transmission Date: 20090719
  Serious: Yes (Disabling)
  Sender: FDA-Public Use
  Company Number: JP-ASTRAZENECA-2008AP09812

PATIENT
  Age: 65 Year
  Sex: Male

DRUGS (2)
  1. CRESTOR [Suspect]
     Indication: HYPERCHOLESTEROLAEMIA
     Route: 048
     Dates: end: 20081125
  2. LOXONIN [Suspect]
     Dosage: DOSE UNKNOWN
     Route: 048
     Dates: end: 20081121

REACTIONS (1)
  - RENAL FAILURE ACUTE [None]
